FAERS Safety Report 5469549-7 (Version None)
Quarter: 2007Q3

REPORT INFORMATION
  Report Type: 
  Country: None (occurrence: None)
  Receive Date: 20070927
  Receipt Date: 20070920
  Transmission Date: 20080115
  Serious: Yes (Life-Threatening)
  Sender: FDA-Public Use
  Company Number: B0488743A

PATIENT
  Age: 50 Year
  Sex: Female

DRUGS (1)
  1. ONDANSETRON [Suspect]
     Indication: DRUG USE FOR UNKNOWN INDICATION
     Route: 042
     Dates: start: 20070606, end: 20070606

REACTIONS (1)
  - CARDIAC ARREST [None]
